FAERS Safety Report 8514858-8 (Version None)
Quarter: 2012Q3

REPORT INFORMATION
  Report Type: 
  Country: None (occurrence: None)
  Receive Date: 20120717
  Receipt Date: 20120710
  Transmission Date: 20120928
  Serious: Yes (Hospitalization)
  Sender: FDA-Public Use
  Company Number: DE-ROCHE-1087400

PATIENT
  Age: 31 Year
  Sex: Male
  Weight: 104 kg

DRUGS (3)
  1. COPEGUS [Suspect]
     Indication: HEPATITIS C
     Dates: start: 20120611, end: 20120624
  2. PEGASYS [Suspect]
     Indication: HEPATITIS C
     Route: 058
     Dates: start: 20120611, end: 20120618
  3. TELAPREVIR [Suspect]
     Indication: HEPATITIS C
     Dates: start: 20120611, end: 20120624

REACTIONS (1)
  - ANAL FISSURE [None]
